FAERS Safety Report 5968218-4 (Version None)
Quarter: 2008Q4

REPORT INFORMATION
  Report Type: 
  Country: None (occurrence: None)
  Receive Date: 20081126
  Receipt Date: 20081117
  Transmission Date: 20090506
  Serious: Yes (Life-Threatening, Hospitalization)
  Sender: FDA-Public Use
  Company Number: B0546619A

PATIENT
  Age: 64 Year
  Sex: Male

DRUGS (7)
  1. AUGMENTIN '125' [Suspect]
     Indication: DERMO-HYPODERMITIS
     Dosage: 1G TWICE PER DAY
     Route: 048
     Dates: start: 20080916, end: 20080918
  2. ORBENINE [Suspect]
     Indication: DERMO-HYPODERMITIS
     Dosage: 1G THREE TIMES PER DAY
     Route: 048
     Dates: start: 20080926, end: 20080928
  3. CIPROFLOXACIN HYDROCHLORIDE [Suspect]
     Indication: DERMO-HYPODERMITIS
     Route: 065
     Dates: start: 20080918, end: 20080923
  4. DALACINE [Suspect]
     Indication: DERMO-HYPODERMITIS
     Route: 048
     Dates: start: 20080918, end: 20080923
  5. PYOSTACINE [Concomitant]
     Dates: start: 20080918, end: 20080923
  6. FLAMMAZINE [Concomitant]
     Dates: start: 20080918, end: 20080923
  7. DIALYSIS [Concomitant]
     Dates: start: 20080922

REACTIONS (3)
  - DRUG ERUPTION [None]
  - DRUG TOXICITY [None]
  - TUBULOINTERSTITIAL NEPHRITIS [None]
